FAERS Safety Report 8417996-3 (Version None)
Quarter: 2012Q2

REPORT INFORMATION
  Report Type: 
  Country: None (occurrence: None)
  Receive Date: 20120531
  Receipt Date: 20120531
  Transmission Date: 20120825
  Serious: Yes (Life-Threatening, Hospitalization, Other)
  Sender: FDA-Public Use
  Company Number: None

PATIENT
  Sex: Female
  Weight: 102.9665 kg

DRUGS (3)
  1. IMPLANON [Suspect]
     Indication: ENDOMETRIOSIS
     Dosage: EVERY 3 YEARS SUBDERMAL
     Route: 059
     Dates: start: 20090801, end: 20091223
  2. IMPLANON [Suspect]
     Indication: CONTRACEPTION
     Dosage: EVERY 3 YEARS SUBDERMAL
     Route: 059
     Dates: start: 20090801, end: 20091223
  3. IMPLANON [Suspect]
     Indication: ADENOMYOSIS
     Dosage: EVERY 3 YEARS SUBDERMAL
     Route: 059
     Dates: start: 20090801, end: 20091223

REACTIONS (7)
  - UPPER RESPIRATORY TRACT INFECTION [None]
  - HYPERGLYCAEMIA [None]
  - ASTHENIA [None]
  - IMMUNOSUPPRESSION [None]
  - ABASIA [None]
  - HAEMOGLOBIN DECREASED [None]
  - BRONCHITIS [None]
